FAERS Safety Report 6212784-0 (Version None)
Quarter: 2009Q2

REPORT INFORMATION
  Report Type: 
  Country: None (occurrence: None)
  Receive Date: 20090603
  Receipt Date: 20090602
  Transmission Date: 20091009
  Serious: Yes (Other)
  Sender: FDA-Public Use
  Company Number: FR-JNJFOC-20090600681

PATIENT
  Age: 85 Year
  Sex: Male

DRUGS (2)
  1. OFLOCET [Suspect]
     Indication: PROSTATITIS
     Dosage: 3 WEEKS
     Route: 048
  2. STATINS [Concomitant]
     Indication: DRUG USE FOR UNKNOWN INDICATION
     Route: 048

REACTIONS (2)
  - GAIT DISTURBANCE [None]
  - PAIN IN EXTREMITY [None]
